FAERS Safety Report 9826836 (Version 1)
Quarter: 2014Q1

REPORT INFORMATION
  Report Type: Spontaneous
  Country: US (occurrence: US)
  Receive Date: 20140117
  Receipt Date: 20140117
  Transmission Date: 20141002
  Serious: No
  Sender: FDA-Public Use
  Company Number: US-GLAXOSMITHKLINE-A1002673A

PATIENT
  Sex: Male

DRUGS (4)
  1. PROMACTA [Suspect]
     Indication: CHRONIC LEUKAEMIA
     Dosage: 25MG PER DAY
     Route: 048
     Dates: start: 201206
  2. AZITHROMYCIN [Concomitant]
  3. DOXYCLINE [Concomitant]
  4. ANDRODERM [Concomitant]

REACTIONS (1)
  - White blood cell count increased [Unknown]
